FAERS Safety Report 10384501 (Version 1)
Quarter: 2014Q3

REPORT INFORMATION
  Report Type: Spontaneous
  Country: US (occurrence: None)
  Receive Date: 20140813
  Receipt Date: 20140813
  Transmission Date: 20150326
  Serious: Yes (Hospitalization)
  Sender: FDA-Public Use
  Company Number: None

PATIENT
  Age: 20 Year
  Sex: Male
  Weight: 68.04 kg

DRUGS (2)
  1. RISPERIDONE. [Suspect]
     Active Substance: RISPERIDONE
     Indication: SCHIZOPHRENIA
     Dosage: INJECTION AND PILL?JNJECTIONS 2X WWK, X^S 2 WKS-
  2. BENZTROPINE [Concomitant]
     Active Substance: BENZTROPINE

REACTIONS (9)
  - Nausea [None]
  - Salivary hypersecretion [None]
  - Gynaecomastia [None]
  - Weight increased [None]
  - Swelling [None]
  - Chest pain [None]
  - Fatigue [None]
  - Tremor [None]
  - Asthenia [None]
